FAERS Safety Report 9611699 (Version 4)
Quarter: 2014Q2

REPORT INFORMATION
  Report Type: Spontaneous
  Country: US (occurrence: US)
  Receive Date: 20131010
  Receipt Date: 20140417
  Transmission Date: 20141212
  Serious: Yes (Other)
  Sender: FDA-Public Use
  Company Number: US-PFIZER INC-2013286274

PATIENT
  Age: 62 Year
  Sex: Male

DRUGS (12)
  1. SUTENT [Suspect]
     Indication: RENAL CELL CARCINOMA
     Dosage: 50 MG, 1X/DAY
     Route: 048
     Dates: start: 20130831
  2. SUTENT [Suspect]
     Dosage: 50 MG, 1X/DAY
     Route: 048
     Dates: start: 20130830
  3. SUTENT [Suspect]
     Dosage: 50 MG, 1X/DAY (4 WEEKS ON, 2 WEEKS OFF)
     Route: 048
     Dates: start: 20130829
  4. LORTAB [Suspect]
     Indication: PAIN
     Dosage: UNK
  5. MEGACE [Concomitant]
     Dosage: UNK
  6. METOPROLOL SUCCINATE [Concomitant]
     Dosage: UNK
  7. PREDNISONE [Concomitant]
     Dosage: UNK
  8. MEGESTROL [Concomitant]
     Dosage: UNK
  9. CULTURELLE [Concomitant]
     Dosage: UNK
  10. INDOCIN [Concomitant]
     Dosage: UNK
  11. COLCRYS [Concomitant]
     Dosage: UNK
  12. METOPROLOL [Concomitant]
     Dosage: UNK

REACTIONS (12)
  - Nausea [Recovering/Resolving]
  - Muscular weakness [Unknown]
  - Vomiting [Unknown]
  - Stomatitis [Unknown]
  - Rash [Unknown]
  - Asthenia [Unknown]
  - Hypotonia [Unknown]
  - Skin lesion [Unknown]
  - Lacrimation increased [Unknown]
  - Arthritis [Unknown]
  - Gout [Unknown]
  - Confusional state [Unknown]
